FAERS Safety Report 10174273 (Version 1)
Quarter: 2014Q2

REPORT INFORMATION
  Report Type: Spontaneous
  Country: DK (occurrence: FR)
  Receive Date: 20140515
  Receipt Date: 20140515
  Transmission Date: 20141212
  Serious: Yes (Death)
  Sender: FDA-Public Use
  Company Number: FR-FRI-1000067293

PATIENT
  Age: 88 Year
  Sex: Female

DRUGS (4)
  1. ESCITALOPRAM [Suspect]
     Dosage: 0.5 DF
     Route: 048
  2. PREVISCAN [Suspect]
     Dosage: 1 DF
     Route: 048
     Dates: end: 20140210
  3. DIFFU K [Concomitant]
     Dosage: 1 DF
     Route: 048
  4. LASILIX FAIBLE [Concomitant]
     Dosage: 1 DF
     Route: 048

REACTIONS (2)
  - Cerebral haemorrhage [Fatal]
  - Eye haemorrhage [Fatal]
